FAERS Safety Report 19170647 (Version 7)
Quarter: 2023Q1

REPORT INFORMATION
  Report Type: Report from Study
  Country: US (occurrence: US)
  Receive Date: 20210422
  Receipt Date: 20230313
  Transmission Date: 20230418
  Serious: Yes (Other)
  Sender: FDA-Public Use
  Company Number: NVSC2021US083541

PATIENT
  Sex: Female

DRUGS (4)
  1. KESIMPTA [Suspect]
     Active Substance: OFATUMUMAB
     Indication: Relapsing-remitting multiple sclerosis
     Dosage: UNK (WEEK 0, WEEK 1 AND WEEK 2 AS DIRECTED)
     Route: 058
     Dates: start: 20210326
  2. KESIMPTA [Suspect]
     Active Substance: OFATUMUMAB
     Indication: Multiple sclerosis
     Dosage: 20 MG, QMO, (BENEATH THE SKIN, USUALLY VIA INJECTION) (SOLUTION)
     Route: 058
  3. VITAMIN D [Concomitant]
     Active Substance: VITAMIN D NOS
     Indication: Product used for unknown indication
     Dosage: UNK
     Route: 065
  4. VITAMIN B12 [Concomitant]
     Active Substance: CYANOCOBALAMIN
     Indication: Product used for unknown indication
     Dosage: UNK
     Route: 065

REACTIONS (11)
  - Loss of consciousness [Unknown]
  - Pruritus [Unknown]
  - Arthralgia [Unknown]
  - Joint stiffness [Unknown]
  - Cyst [Unknown]
  - Halo vision [Recovered/Resolved]
  - Feeling cold [Unknown]
  - Fatigue [Not Recovered/Not Resolved]
  - Hypersomnia [Unknown]
  - Hypophagia [Unknown]
  - Weight decreased [Unknown]
